FAERS Safety Report 9952395 (Version 1)
Quarter: 2014Q1

REPORT INFORMATION
  Report Type: Report from Study
  Country: US (occurrence: US)
  Receive Date: 20140304
  Receipt Date: 20140304
  Transmission Date: 20141002
  Serious: No
  Sender: FDA-Public Use
  Company Number: US-ABBVIE-13P-163-1078106-00

PATIENT
  Age: 62 Year
  Sex: Female
  Weight: 105.33 kg

DRUGS (10)
  1. HUMIRA [Suspect]
     Indication: RHEUMATOID ARTHRITIS
     Dates: start: 20130215
  2. HYDROCODONE [Concomitant]
     Indication: SPINAL FUSION SURGERY
  3. TRAZODONE [Concomitant]
     Indication: INSOMNIA
  4. SERTRALINE [Concomitant]
     Indication: DEPRESSION
  5. METFORMIN [Concomitant]
     Indication: INSULIN RESISTANT DIABETES
  6. KLONOPIN [Concomitant]
     Indication: RESTLESS LEGS SYNDROME
  7. LYRICA [Concomitant]
     Indication: NEURALGIA
  8. ASPIRIN [Concomitant]
     Indication: HYPERLIPIDAEMIA
  9. CORTISONE [Concomitant]
     Indication: NASAL DISORDER
     Route: 045
  10. PROTONIX [Concomitant]
     Indication: GASTROOESOPHAGEAL REFLUX DISEASE

REACTIONS (1)
  - Sinusitis [Recovered/Resolved]
